FAERS Safety Report 4325421-7 (Version None)
Quarter: 2004Q1

REPORT INFORMATION
  Report Type: 
  Country: None (occurrence: None)
  Receive Date: 20040324
  Receipt Date: 20040318
  Transmission Date: 20041129
  Serious: Yes (Other)
  Sender: FDA-Public Use
  Company Number: 2004202181US

PATIENT

DRUGS (2)
  1. ZYVOX [Suspect]
  2. SSRI [Suspect]

REACTIONS (2)
  - ADVERSE DRUG REACTION [None]
  - DRUG INTERACTION [None]
